FAERS Safety Report 6744448-9 (Version None)
Quarter: 2010Q2

REPORT INFORMATION
  Report Type: 
  Country: None (occurrence: None)
  Receive Date: 20100527
  Receipt Date: 20100520
  Transmission Date: 20101027
  Serious: Yes (Life-Threatening)
  Sender: FDA-Public Use
  Company Number: JP-PFIZER INC-2010061487

PATIENT
  Age: 80 Year
  Sex: Male
  Weight: 65.1 kg

DRUGS (8)
  1. CELECOX [Suspect]
     Indication: OSTEOARTHRITIS
     Dosage: UNK
     Route: 048
     Dates: end: 20100428
  2. URIEF [Concomitant]
     Dosage: UNK
     Route: 048
  3. SIMVASTATIN [Concomitant]
     Route: 048
  4. DUTASTERIDE [Concomitant]
     Route: 048
  5. EPEL [Concomitant]
     Route: 048
  6. BENZBROMARONE [Concomitant]
     Route: 048
  7. HARNAL [Concomitant]
     Route: 048
  8. REBAMIPIDE [Concomitant]
     Route: 048

REACTIONS (2)
  - ANGINA UNSTABLE [None]
  - HAEMODYNAMIC INSTABILITY [None]
